FAERS Safety Report 6662678-1 (Version None)
Quarter: 2010Q2

REPORT INFORMATION
  Report Type: 
  Country: None (occurrence: None)
  Receive Date: 20100401
  Receipt Date: 20100326
  Transmission Date: 20101027
  Serious: Yes (Other)
  Sender: FDA-Public Use
  Company Number: US-BIOGENIDEC-2009BI024426

PATIENT
  Age: 57 Year
  Sex: Female

DRUGS (8)
  1. TYSABRI [Suspect]
     Indication: MULTIPLE SCLEROSIS
     Route: 042
     Dates: start: 20080507, end: 20090320
  2. BACLOFEN [Concomitant]
  3. TIZANIDINE HCL [Concomitant]
  4. ALPRAZOLAM [Concomitant]
  5. MOTRIN [Concomitant]
  6. VICODIN [Concomitant]
  7. BONIVA [Concomitant]
  8. M.V.I. [Concomitant]

REACTIONS (1)
  - HYPOPHARYNGEAL CANCER [None]
